FAERS Safety Report 7606003-8 (Version None)
Quarter: 2011Q3

REPORT INFORMATION
  Report Type: 
  Country: None (occurrence: None)
  Receive Date: 20110713
  Receipt Date: 20110630
  Transmission Date: 20111222
  Serious: Yes (Other)
  Sender: FDA-Public Use
  Company Number: PHHY2011BG58932

PATIENT
  Sex: Male

DRUGS (1)
  1. EXJADE [Suspect]
     Indication: THALASSAEMIA BETA
     Dosage: 240 MG, QD
     Dates: start: 20100901, end: 20110301

REACTIONS (11)
  - ABDOMINAL PAIN [None]
  - ENTERITIS [None]
  - DECREASED APPETITE [None]
  - ALANINE AMINOTRANSFERASE INCREASED [None]
  - VOMITING [None]
  - WEIGHT DECREASED [None]
  - ASPARTATE AMINOTRANSFERASE INCREASED [None]
  - NAUSEA [None]
  - MUCOSAL HYPERAEMIA [None]
  - DIARRHOEA [None]
  - LYMPHOID TISSUE HYPERPLASIA [None]
